FAERS Safety Report 6076815-3 (Version None)
Quarter: 2009Q1

REPORT INFORMATION
  Report Type: 
  Country: None (occurrence: None)
  Receive Date: 20090213
  Receipt Date: 20090202
  Transmission Date: 20090719
  Serious: Yes (Hospitalization)
  Sender: FDA-Public Use
  Company Number: FR-JNJFOC-20090106627

PATIENT
  Age: 82 Year
  Sex: Male

DRUGS (17)
  1. TOPALGIC [Suspect]
     Indication: SKIN ULCER
     Route: 048
  2. LOVENOX [Suspect]
     Indication: DRUG USE FOR UNKNOWN INDICATION
     Route: 058
  3. KARDEGIC [Suspect]
     Route: 048
  4. KARDEGIC [Suspect]
     Indication: DRUG USE FOR UNKNOWN INDICATION
     Route: 048
  5. TAHOR [Suspect]
     Indication: DRUG USE FOR UNKNOWN INDICATION
     Route: 048
  6. CARDENSIEL [Suspect]
     Indication: DRUG USE FOR UNKNOWN INDICATION
     Route: 048
  7. DISCOTRINE [Suspect]
     Route: 003
  8. DISCOTRINE [Suspect]
     Indication: DRUG USE FOR UNKNOWN INDICATION
     Route: 003
  9. SECTRAL [Concomitant]
  10. SIMVASTATIN [Concomitant]
  11. PLAVIX [Concomitant]
  12. TRIATEC [Concomitant]
  13. AMLOD [Concomitant]
  14. ESOMEPRAZOLE MAGNESIUM [Concomitant]
  15. LASILIX [Concomitant]
  16. SPIRIVA [Concomitant]
  17. SYMBICORT [Concomitant]

REACTIONS (4)
  - CYTOLYTIC HEPATITIS [None]
  - ERYSIPELAS [None]
  - HYPONATRAEMIA [None]
  - SEPTIC SHOCK [None]
